FAERS Safety Report 9747216 (Version 2)
Quarter: 2013Q4

REPORT INFORMATION
  Report Type: Report from Study
  Country: US (occurrence: US)
  Receive Date: 20131212
  Receipt Date: 20131216
  Transmission Date: 20140711
  Serious: Yes (Death)
  Sender: FDA-Public Use
  Company Number: US-ROCHE-1317773

PATIENT
  Sex: Female

DRUGS (2)
  1. XELODA [Suspect]
     Indication: COLON CANCER
     Dosage: 2 WEEKS ON, 1 WEEK OFF
     Route: 048
  2. XELODA [Suspect]
     Dosage: 3 TABS PO BID 14 DAYS ON  THEN OFF FOR 7 DAYS
     Route: 048

REACTIONS (1)
  - Disease progression [Fatal]
